FAERS Safety Report 9953078 (Version 1)
Quarter: 2014Q1

REPORT INFORMATION
  Report Type: Report from Study
  Country: US (occurrence: US)
  Receive Date: 20140304
  Receipt Date: 20140304
  Transmission Date: 20141002
  Serious: No
  Sender: FDA-Public Use
  Company Number: US-ABBVIE-13P-163-1079061-00

PATIENT
  Age: 19 Year
  Sex: Female

DRUGS (2)
  1. HUMIRA [Suspect]
     Indication: PSORIASIS
     Dates: start: 2010, end: 201204
  2. PRENATAL VITAMINS [Concomitant]
     Indication: PREGNANCY
     Dates: start: 201204

REACTIONS (2)
  - Gestational diabetes [Recovered/Resolved]
  - Gestational hypertension [Recovered/Resolved]
